FAERS Safety Report 9814726 (Version 3)
Quarter: 2014Q3

REPORT INFORMATION
  Report Type: Spontaneous
  Country: US (occurrence: US)
  Receive Date: 20140113
  Receipt Date: 20140821
  Transmission Date: 20150326
  Serious: Yes (Hospitalization, Other)
  Sender: FDA-Public Use
  Company Number: US-009507513-1401USA004993

PATIENT
  Sex: Female

DRUGS (1)
  1. NUVARING [Suspect]
     Active Substance: ETHINYL ESTRADIOL\ETONOGESTREL
     Indication: CONTRACEPTION
     Dosage: UNK
     Route: 067
     Dates: start: 200512, end: 20060814

REACTIONS (11)
  - Abdominal distension [Unknown]
  - Urticaria papular [Unknown]
  - Asthma [Unknown]
  - Systemic lupus erythematosus [Unknown]
  - Dysfunctional uterine bleeding [Unknown]
  - Bronchitis [Unknown]
  - Pulmonary embolism [Unknown]
  - Sinusitis [Unknown]
  - Menorrhagia [Unknown]
  - Deep vein thrombosis [Unknown]
  - Migraine [Unknown]

NARRATIVE: CASE EVENT DATE: 20060809
